FAERS Safety Report 4365358-0 (Version None)
Quarter: 2004Q2

REPORT INFORMATION
  Report Type: 
  Country: None (occurrence: None)
  Receive Date: 20040525
  Receipt Date: 20040428
  Transmission Date: 20050107
  Serious: Yes (Hospitalization)
  Sender: FDA-Public Use
  Company Number: F01200400918

PATIENT
  Age: 61 Year
  Sex: Male

DRUGS (8)
  1. (OXALIPLATIN) - SOLUTION - 85 MG/M2 [Suspect]
     Indication: COLORECTAL CANCER
     Dosage: 85 MG/M2, Q2W, INTRAVENOUS NOS
     Route: 042
     Dates: start: 20040422, end: 20040422
  2. FLUOROURACIL [Suspect]
     Dosage: 500 MG/M2 BOLUS ON D1, D8 AND D15, Q4W ,INTRAVENOUS BOLUS
     Route: 040
     Dates: start: 20040422, end: 20040422
  3. LEUCOVORIN CALCIUM [Suspect]
     Dosage: 20 MG/M2 ON D1, D8 AND D15, Q4W, INTRAVENOUS BOLUS
     Route: 040
     Dates: start: 20040422, end: 20040422
  4. AVASTIN [Suspect]
     Dosage: 5 MG/KG OVER 30-90 MINUTES IV INFUSION ON DAY 1 AND DAY 15, Q4W, INTRAVENOUS NOS
     Route: 042
     Dates: start: 20040422, end: 20040422
  5. THORAZINE [Concomitant]
  6. DARVOCET [Concomitant]
  7. METOPROLOL TARTRATE [Concomitant]
  8. HUMULIN 70/30 [Concomitant]

REACTIONS (12)
  - BOWEL SOUNDS ABNORMAL [None]
  - DIARRHOEA [None]
  - DUODENAL ULCER [None]
  - DUODENITIS [None]
  - GASTRITIS [None]
  - GASTROOESOPHAGEAL REFLUX DISEASE [None]
  - GLUCOSE URINE [None]
  - HIATUS HERNIA [None]
  - HYPERGLYCAEMIA [None]
  - HYPONATRAEMIA [None]
  - THROMBOCYTOPENIA [None]
  - URINE KETONE BODY PRESENT [None]
